FAERS Safety Report 8043580-X (Version None)
Quarter: 2012Q1

REPORT INFORMATION
  Report Type: 
  Country: None (occurrence: None)
  Receive Date: 20120112
  Receipt Date: 20120109
  Transmission Date: 20120608
  Serious: Yes (Death)
  Sender: FDA-Public Use
  Company Number: AR-GENZYME-CLOF-1002004

PATIENT
  Sex: Male

DRUGS (4)
  1. CLOLAR [Suspect]
     Dosage: 40 MG/M2, QDX5 (1 CYCLE)
     Route: 065
  2. CLOLAR [Suspect]
     Indication: ACUTE LYMPHOCYTIC LEUKAEMIA RECURRENT
     Dosage: 40 MG/M2, 1 CYCLE
     Route: 065
  3. ETOPOSIDE [Concomitant]
     Indication: ACUTE LYMPHOCYTIC LEUKAEMIA RECURRENT
     Dosage: 150 MG/M2, QDX5 (1 CYCLE)
     Route: 065
  4. CYCLOPHOSPHAMIDE [Concomitant]
     Indication: ACUTE LYMPHOCYTIC LEUKAEMIA RECURRENT
     Dosage: 440 MG/M2, QDX5 (1 CYCLE)
     Route: 065

REACTIONS (4)
  - RASH PRURITIC [None]
  - NEUTROPENIA [None]
  - PYREXIA [None]
  - ACUTE LYMPHOCYTIC LEUKAEMIA RECURRENT [None]
